FAERS Safety Report 13908358 (Version 1)
Quarter: 2017Q3

REPORT INFORMATION
  Report Type: Spontaneous
  Country: CA (occurrence: CA)
  Receive Date: 20170826
  Receipt Date: 20170826
  Transmission Date: 20171127
  Serious: Yes (Other)
  Sender: FDA-Public Use
  Company Number: CA-AMGEN-CANSP2017127941

PATIENT
  Age: 16 Year
  Sex: Male

DRUGS (5)
  1. VITAMIN D3 [Concomitant]
     Active Substance: CHOLECALCIFEROL
     Indication: HYPOCALCAEMIA
  2. CALCIUM [Concomitant]
     Active Substance: CALCIUM
     Indication: HYPOCALCAEMIA
  3. XGEVA [Suspect]
     Active Substance: DENOSUMAB
     Dosage: 120 MG, QMO
     Route: 065
  4. CHOLECALCIFEROL [Concomitant]
     Active Substance: CHOLECALCIFEROL
     Indication: HYPOCALCAEMIA
  5. XGEVA [Suspect]
     Active Substance: DENOSUMAB
     Indication: BONE GIANT CELL TUMOUR
     Dosage: 120 MG, QWK
     Route: 065

REACTIONS (3)
  - Off label use [Unknown]
  - Hypocalcaemia [Recovering/Resolving]
  - Bone giant cell tumour [Unknown]
